FAERS Safety Report 20047232 (Version 1)
Quarter: 2021Q4

REPORT INFORMATION
  Report Type: Spontaneous
  Country: UM (occurrence: None)
  Receive Date: 20211109
  Receipt Date: 20211109
  Transmission Date: 20220303
  Serious: Yes (Death, Disabling)
  Sender: FDA-Public Use
  Company Number: UM-ROCHE-2952344

PATIENT
  Sex: Male

DRUGS (1)
  1. RITUXAN [Suspect]
     Active Substance: RITUXIMAB
     Indication: Neuromyelitis optica spectrum disorder
     Route: 065

REACTIONS (10)
  - Death [Fatal]
  - Blindness [Unknown]
  - Spinal cord disorder [Unknown]
  - Asthenia [Unknown]
  - Neuromyelitis optica spectrum disorder [Unknown]
  - Optic neuritis [Unknown]
  - Fungal infection [Recovered/Resolved]
  - Urinary tract infection [Recovered/Resolved]
  - Blindness unilateral [Unknown]
  - Off label use [Unknown]
